FAERS Safety Report 4392497-0 (Version None)
Quarter: 2004Q3

REPORT INFORMATION
  Report Type: 
  Country: None (occurrence: None)
  Receive Date: 20040701
  Receipt Date: 20040615
  Transmission Date: 20050211
  Serious: Yes (Other)
  Sender: FDA-Public Use
  Company Number: 2004-DE-03311GD

PATIENT
  Sex: Female

DRUGS (2)
  1. PRAMIPEXOLE(PRAMIPEXOLE DIHYDROCHLORIDE) [Suspect]
     Indication: PARKINSONISM
  2. DIAZEPAM [Suspect]
     Indication: PARKINSONISM

REACTIONS (1)
  - DRUG INEFFECTIVE [None]
